FAERS Safety Report 8091306-6 (Version None)
Quarter: 2012Q1

REPORT INFORMATION
  Report Type: 
  Country: None (occurrence: None)
  Receive Date: 20120129
  Receipt Date: 20111013
  Transmission Date: 20120608
  Serious: No
  Sender: FDA-Public Use
  Company Number: US-ABBOTT-11P-163-0865397-00

PATIENT
  Sex: Male

DRUGS (2)
  1. HUMIRA [Suspect]
     Indication: PSORIASIS
     Dosage: DAY 1 LOADING DOSE
     Route: 058
     Dates: start: 20111007, end: 20111013
  2. HUMIRA [Suspect]
     Route: 058

REACTIONS (1)
  - POLLAKIURIA [None]
